FAERS Safety Report 5007899-9 (Version None)
Quarter: 2006Q2

REPORT INFORMATION
  Report Type: 
  Country: None (occurrence: None)
  Receive Date: 20060518
  Receipt Date: 20060427
  Transmission Date: 20061013
  Serious: Yes (Hospitalization)
  Sender: FDA-Public Use
  Company Number: FR200602004751

PATIENT
  Age: 78 Year
  Sex: Female
  Weight: 69 kg

DRUGS (8)
  1. FORTEO [Suspect]
     Indication: OSTEOPOROSIS
     Dosage: 20 UG, DAILY (1/D), SUBCUTANEOUS
     Route: 058
     Dates: start: 20050928
  2. COVERSYL (PERINDOPRIL) [Concomitant]
  3. SECTRAL [Concomitant]
  4. PREDNISONE TAB [Concomitant]
  5. STRUCTUM (CHONDROITIN SULFATE SODIUM) [Concomitant]
  6. PRAVASTATIN [Concomitant]
  7. CORDIPATCH (GLYCERYL TRINITRATE) PATCH [Concomitant]
  8. KARDEGIC (ACETYLSALICYLATE LYSINE) [Concomitant]

REACTIONS (2)
  - FATIGUE [None]
  - MYOCARDIAL INFARCTION [None]
